FAERS Safety Report 20838512 (Version 11)
Quarter: 2024Q2

REPORT INFORMATION
  Report Type: Spontaneous
  Country: US (occurrence: US)
  Receive Date: 20220517
  Receipt Date: 20240430
  Transmission Date: 20240716
  Serious: Yes (Other)
  Sender: FDA-Public Use
  Company Number: US-PFIZER INC-202200697414

PATIENT
  Age: 79 Year
  Sex: Female

DRUGS (6)
  1. XELJANZ [Suspect]
     Active Substance: TOFACITINIB CITRATE
     Indication: Colitis ulcerative
     Dosage: FOR 4 MONTHS
  2. XELJANZ [Suspect]
     Active Substance: TOFACITINIB CITRATE
     Dosage: 5 MG, 2X/DAY
     Route: 048
  3. XELJANZ [Suspect]
     Active Substance: TOFACITINIB CITRATE
     Dosage: 5 MG, DAILY
     Route: 048
  4. XELJANZ [Suspect]
     Active Substance: TOFACITINIB CITRATE
     Dosage: 2 PILLS A DAY
  5. XELJANZ [Suspect]
     Active Substance: TOFACITINIB CITRATE
     Dosage: 1 PILL A DAY
  6. ENTIVIO [Concomitant]
     Dosage: UNK

REACTIONS (11)
  - Blindness unilateral [Unknown]
  - Macular degeneration [Unknown]
  - Colitis ulcerative [Unknown]
  - Rotator cuff syndrome [Unknown]
  - Cardiac disorder [Unknown]
  - Dyspnoea [Unknown]
  - Feeling abnormal [Unknown]
  - Peripheral swelling [Unknown]
  - Gait disturbance [Unknown]
  - Product dose omission issue [Unknown]
  - Intentional product use issue [Unknown]
